FAERS Safety Report 6854141-X (Version None)
Quarter: 2010Q3

REPORT INFORMATION
  Report Type: 
  Country: None (occurrence: None)
  Receive Date: 20100717
  Receipt Date: 20071227
  Transmission Date: 20110219
  Serious: No
  Sender: FDA-Public Use
  Company Number: US-PFIZER INC-2008000275

PATIENT
  Sex: Female
  Weight: 70.9 kg

DRUGS (5)
  1. CHANTIX [Suspect]
     Indication: SMOKING CESSATION THERAPY
     Dates: start: 20071126
  2. PRAVACHOL [Concomitant]
  3. FOSAMAX [Concomitant]
  4. INDERAL [Concomitant]
  5. ALL OTHER THERAPEUTIC PRODUCTS [Concomitant]

REACTIONS (4)
  - ABDOMINAL DISCOMFORT [None]
  - DECREASED APPETITE [None]
  - MALAISE [None]
  - NAUSEA [None]
